FAERS Safety Report 7215667-2 (Version None)
Quarter: 2011Q1

REPORT INFORMATION
  Report Type: 
  Country: None (occurrence: None)
  Receive Date: 20110107
  Receipt Date: 20110104
  Transmission Date: 20110831
  Serious: Yes (Hospitalization)
  Sender: FDA-Public Use
  Company Number: PHHO2010US19828

PATIENT
  Sex: Female
  Weight: 86.168 kg

DRUGS (2)
  1. XANAX [Concomitant]
     Indication: ANXIETY
     Dates: start: 20050101
  2. FTY 720 [Suspect]
     Indication: MULTIPLE SCLEROSIS
     Dosage: 0.5 MG, QD
     Route: 048
     Dates: start: 20101227, end: 20101229

REACTIONS (2)
  - NECK PAIN [None]
  - CHEST DISCOMFORT [None]
